FAERS Safety Report 17607193 (Version 2)
Quarter: 2020Q2

REPORT INFORMATION
  Report Type: Spontaneous
  Country: US (occurrence: US)
  Receive Date: 20200331
  Receipt Date: 20200403
  Transmission Date: 20200713
  Serious: No
  Sender: FDA-Public Use
  Company Number: US-MATRIXX INITIATIVES, INC.-2082164

PATIENT
  Age: 57 Year
  Sex: Male
  Weight: 102.73 kg

DRUGS (1)
  1. ZICAM COLD REMEDY MEDICATED FRUIT DROPS [Suspect]
     Active Substance: HOMEOPATHICS
     Indication: NASOPHARYNGITIS
     Route: 048
     Dates: start: 20200318, end: 20200322

REACTIONS (2)
  - Ageusia [Recovered/Resolved]
  - Anosmia [Recovered/Resolved]
